FAERS Safety Report 18618000 (Version 7)
Quarter: 2022Q1

REPORT INFORMATION
  Report Type: Other
  Country: AR (occurrence: AR)
  Receive Date: 20201215
  Receipt Date: 20220110
  Transmission Date: 20220423
  Serious: Yes (Hospitalization, Other)
  Sender: FDA-Public Use
  Company Number: AR-002147023-PHHY2018AR003865

PATIENT
  Age: 17 Year
  Sex: Female

DRUGS (1)
  1. XOLAIR [Suspect]
     Active Substance: OMALIZUMAB
     Indication: Asthma
     Dosage: MOST RECENT DATE: 07/APR/2021
     Route: 058
     Dates: start: 20170628, end: 20210407

REACTIONS (14)
  - Asthmatic crisis [Not Recovered/Not Resolved]
  - Bronchial obstruction [Unknown]
  - Bronchospasm [Recovering/Resolving]
  - Abdominal pain [Recovering/Resolving]
  - COVID-19 [Unknown]
  - Pneumonia [Unknown]
  - Abdominal discomfort [Recovering/Resolving]
  - Urinary tract infection [Unknown]
  - Asthma [Unknown]
  - Pyrexia [Unknown]
  - Hepatomegaly [Recovering/Resolving]
  - Feeling abnormal [Unknown]
  - Weight increased [Unknown]
  - Drug ineffective [Unknown]

NARRATIVE: CASE EVENT DATE: 20201129
